FAERS Safety Report 5867023-7 (Version None)
Quarter: 2008Q3

REPORT INFORMATION
  Report Type: 
  Country: None (occurrence: None)
  Receive Date: 20080902
  Receipt Date: 20080821
  Transmission Date: 20090109
  Serious: Yes (Hospitalization)
  Sender: FDA-Public Use
  Company Number: A0745285A

PATIENT
  Age: 55 Year
  Sex: Male
  Weight: 104.5 kg

DRUGS (2)
  1. AVANDIA [Suspect]
     Dosage: 4MG PER DAY
     Dates: start: 20050730, end: 20071201
  2. AMARYL [Concomitant]
     Dates: start: 20060625, end: 20070419

REACTIONS (3)
  - ACUTE MYOCARDIAL INFARCTION [None]
  - CEREBROVASCULAR ACCIDENT [None]
  - PERIPHERAL ISCHAEMIA [None]
